FAERS Safety Report 22124212 (Version 2)
Quarter: 2024Q2

REPORT INFORMATION
  Report Type: Report from Study
  Country: US (occurrence: US)
  Receive Date: 20230322
  Receipt Date: 20240520
  Transmission Date: 20240716
  Serious: Yes (Hospitalization)
  Sender: FDA-Public Use
  Company Number: US-002147023-NVSC2023US061031

PATIENT
  Sex: Male

DRUGS (2)
  1. ENTRESTO [Suspect]
     Active Substance: SACUBITRIL\VALSARTAN
     Indication: Product used for unknown indication
     Dosage: 97 MG SACUBITRIL, 103 MG VALSARTAN, BID
     Route: 048
  2. ENTRESTO [Suspect]
     Active Substance: SACUBITRIL\VALSARTAN
     Dosage: 49 MG SACUBITRIL, 51 MG VALSARTAN, BID
     Route: 048

REACTIONS (3)
  - Blood sodium abnormal [Unknown]
  - Blood potassium abnormal [Unknown]
  - Blood potassium increased [Unknown]
